FAERS Safety Report 12803136 (Version 1)
Quarter: 2016Q4

REPORT INFORMATION
  Report Type: Spontaneous
  Country: US (occurrence: US)
  Receive Date: 20161003
  Receipt Date: 20161003
  Transmission Date: 20170207
  Serious: Yes (Other)
  Sender: FDA-Public Use
  Company Number: US-SA-2016SA133392

PATIENT
  Age: 59 Year
  Sex: Female

DRUGS (14)
  1. BACLOFEN. [Concomitant]
     Active Substance: BACLOFEN
  2. DIAZEPAM. [Concomitant]
     Active Substance: DIAZEPAM
  3. FUROSEMIDE. [Concomitant]
     Active Substance: FUROSEMIDE
  4. LEVOTHYROXINE SODIUM. [Concomitant]
     Active Substance: LEVOTHYROXINE SODIUM
  5. AMITRIPTYLINE HYDROCHLORIDE. [Concomitant]
     Active Substance: AMITRIPTYLINE HYDROCHLORIDE
  6. DILAUDID [Concomitant]
     Active Substance: HYDROMORPHONE HYDROCHLORIDE
  7. ESTRADIOL. [Concomitant]
     Active Substance: ESTRADIOL
  8. MS CONTIN [Concomitant]
     Active Substance: MORPHINE SULFATE
  9. AUBAGIO [Suspect]
     Active Substance: TERIFLUNOMIDE
     Indication: MULTIPLE SCLEROSIS
     Route: 048
  10. LYRICA [Concomitant]
     Active Substance: PREGABALIN
  11. ATORVASTATIN CALCIUM. [Concomitant]
     Active Substance: ATORVASTATIN CALCIUM
  12. CARVEDILOL. [Concomitant]
     Active Substance: CARVEDILOL
  13. DULCOLAX NOS [Concomitant]
     Active Substance: BISACODYL OR DOCUSATE SODIUM
  14. MORPHINE SULFATE. [Concomitant]
     Active Substance: MORPHINE SULFATE

REACTIONS (5)
  - Bladder pain [Unknown]
  - Condition aggravated [Unknown]
  - Urinary tract infection [Unknown]
  - Hypoaesthesia [Unknown]
  - Pyrexia [Unknown]
